FAERS Safety Report 7938210-9 (Version None)
Quarter: 2011Q4

REPORT INFORMATION
  Report Type: 
  Country: None (occurrence: None)
  Receive Date: 20111123
  Receipt Date: 20110907
  Transmission Date: 20120403
  Serious: No
  Sender: FDA-Public Use
  Company Number: US-BRISTOL-MYERS SQUIBB COMPANY-16038515

PATIENT
  Age: 56 Year
  Sex: Male
  Weight: 109 kg

DRUGS (1)
  1. ONGLYZA [Suspect]
     Dosage: DOSAGE:5MG WITH EVENING MEAL

REACTIONS (1)
  - BLOOD GLUCOSE FLUCTUATION [None]
